FAERS Safety Report 23124909 (Version 1)
Quarter: 2023Q4

REPORT INFORMATION
  Report Type: Report from Study
  Country: US (occurrence: US)
  Receive Date: 20231030
  Receipt Date: 20231030
  Transmission Date: 20240110
  Serious: No
  Sender: FDA-Public Use
  Company Number: US-BIOVITRUM-2023-US-017250

PATIENT
  Age: 70 Year
  Sex: Female

DRUGS (1)
  1. KINERET [Suspect]
     Active Substance: ANAKINRA
     Indication: Rheumatoid arthritis
     Dosage: 100MG DAILY
     Route: 058
     Dates: start: 20190618

REACTIONS (3)
  - Illness [Unknown]
  - White blood cell count decreased [Unknown]
  - Product prescribing issue [Unknown]
